FAERS Safety Report 7342626-1 (Version None)
Quarter: 2011Q1

REPORT INFORMATION
  Report Type: 
  Country: None (occurrence: None)
  Receive Date: 20110302
  Receipt Date: 20110215
  Transmission Date: 20110831
  Serious: Yes (Other)
  Sender: FDA-Public Use
  Company Number: AUR-APL-2010-02614

PATIENT
  Age: 70 Year
  Sex: Female
  Weight: 58.9676 kg

DRUGS (7)
  1. SIMVASTATIN [Concomitant]
  2. IBUPROFEN [Concomitant]
  3. RAMIPRIL [Concomitant]
  4. AMLODIPINE [Suspect]
     Indication: CEREBROVASCULAR ACCIDENT
     Dosage: 10MG - DAILY - ORAL
     Route: 048
     Dates: start: 20100501
  5. AMLODIPINE [Suspect]
     Indication: HYPERTENSION
     Dosage: 10MG - DAILY - ORAL
     Route: 048
     Dates: start: 20100501
  6. LEVETIRACETAM [Suspect]
     Indication: CONVULSION
     Dates: start: 20100501, end: 20100101
  7. LEVOTHYROXINE SODIUM [Concomitant]

REACTIONS (3)
  - THERAPEUTIC RESPONSE DECREASED [None]
  - CONVULSION [None]
  - BLOOD PRESSURE INADEQUATELY CONTROLLED [None]
